FAERS Safety Report 8334250-9 (Version None)
Quarter: 2012Q2

REPORT INFORMATION
  Report Type: 
  Country: None (occurrence: None)
  Receive Date: 20120503
  Receipt Date: 20120421
  Transmission Date: 20120825
  Serious: Yes (Other)
  Sender: FDA-Public Use
  Company Number: DE-UCBSA-056014

PATIENT
  Age: 67 Year
  Sex: Female

DRUGS (1)
  1. NEUPRO [Suspect]
     Dosage: 2 MG

REACTIONS (2)
  - EYE HAEMORRHAGE [None]
  - CORNEAL BLEEDING [None]
